FAERS Safety Report 13480353 (Version 2)
Quarter: 2017Q2

REPORT INFORMATION
  Report Type: Spontaneous
  Country: DE (occurrence: DE)
  Receive Date: 20170425
  Receipt Date: 20170529
  Transmission Date: 20170830
  Serious: Yes (Hospitalization, Disabling, Other)
  Sender: FDA-Public Use
  Company Number: DE-PFIZER INC-2017173987

PATIENT
  Age: 66 Year
  Sex: Female
  Weight: 80 kg

DRUGS (4)
  1. ANASTROZOL [Concomitant]
     Active Substance: ANASTROZOLE
     Dosage: UNK
  2. FULVESTRANT [Concomitant]
     Active Substance: FULVESTRANT
     Dosage: INJECTION SOLUTION
  3. IBRANCE [Suspect]
     Active Substance: PALBOCICLIB
     Indication: BREAST CANCER METASTATIC
     Dosage: 125 MG, CYCLIC (ONCE A DAY 1-21)
     Route: 048
     Dates: start: 20170131, end: 20170220
  4. ZOLEDRONIC ACID 4MG/100ML [Concomitant]
     Dosage: UNK

REACTIONS (5)
  - Visual impairment [Not Recovered/Not Resolved]
  - Visual field defect [Not Recovered/Not Resolved]
  - Cerebral infarction [Not Recovered/Not Resolved]
  - Hemianopia homonymous [Not Recovered/Not Resolved]
  - Hallucination, visual [Not Recovered/Not Resolved]

NARRATIVE: CASE EVENT DATE: 201702
